FAERS Safety Report 8858868 (Version 1)
Quarter: 2012Q4

REPORT INFORMATION
  Report Type: 
  Country: US (occurrence: US)
  Receive Date: 20121024
  Receipt Date: 20121024
  Transmission Date: 20130627
  Serious: Yes (Hospitalization, Other)
  Sender: FDA-Public Use
  Company Number: US-SANOFI-AVENTIS-2012SA075447

PATIENT
  Age: 76 Year
  Sex: Female

DRUGS (4)
  1. AMBIEN [Suspect]
     Indication: SLEEP DISORDER
     Route: 048
     Dates: start: 2007, end: 20121005
  2. METOPROLOL [Concomitant]
     Indication: CARDIAC DISORDER NOS
  3. FAMOTIDINE [Concomitant]
     Indication: CARDIAC DISORDER NOS
  4. ZOCOR [Concomitant]
     Indication: CARDIAC DISORDER NOS

REACTIONS (7)
  - Cerebrovascular accident [Unknown]
  - Staphylococcal infection [Unknown]
  - Dementia [Not Recovered/Not Resolved]
  - Drug withdrawal syndrome [Not Recovered/Not Resolved]
  - Insomnia [Not Recovered/Not Resolved]
  - Confusional state [Not Recovered/Not Resolved]
  - Incorrect drug administration duration [Unknown]
